FAERS Safety Report 26025864 (Version 1)
Quarter: 2025Q4

REPORT INFORMATION
  Report Type: Spontaneous
  Country: AU (occurrence: AU)
  Receive Date: 20251111
  Receipt Date: 20251111
  Transmission Date: 20260118
  Serious: Yes (Other)
  Sender: SANOFI AVENTIS
  Company Number: AU-DialogSolutions-SAAVPROD-PI837992-C1

PATIENT
  Age: 82 Year
  Sex: Male

DRUGS (1)
  1. DUPILUMAB [Suspect]
     Active Substance: DUPILUMAB
     Indication: Eczema
     Dosage: UNK

REACTIONS (6)
  - Generalised pustular psoriasis [Recovering/Resolving]
  - Skin plaque [Recovering/Resolving]
  - Pustule [Recovering/Resolving]
  - Leukonychia [Recovering/Resolving]
  - Onycholysis [Recovering/Resolving]
  - Dermatitis psoriasiform [Recovering/Resolving]
